FAERS Safety Report 5080279-6 (Version None)
Quarter: 2006Q3

REPORT INFORMATION
  Report Type: 
  Country: None (occurrence: None)
  Receive Date: 20060815
  Receipt Date: 20050804
  Transmission Date: 20061208
  Serious: Yes (Death, Hospitalization)
  Sender: FDA-Public Use
  Company Number: JP-ABBOTT-05P-087-0307770-00

PATIENT
  Sex: Male

DRUGS (34)
  1. KALETRA [Suspect]
     Indication: HIV INFECTION
     Route: 048
     Dates: start: 20040915, end: 20050419
  2. VALPROATE SODIUM [Suspect]
     Indication: CONVULSION
     Dates: start: 20040712
  3. VALPROATE SODIUM [Suspect]
     Dates: start: 20040401, end: 20040711
  4. DIDANOSINE [Concomitant]
     Indication: HIV INFECTION
     Route: 048
     Dates: start: 20040401, end: 20050419
  5. ABACAVIR SULFATE [Concomitant]
     Indication: HIV INFECTION
     Route: 048
     Dates: start: 20040401, end: 20050419
  6. NELFINAVIR [Concomitant]
     Indication: HIV INFECTION
     Route: 048
     Dates: start: 20040401, end: 20040914
  7. EFAVIRENZ [Concomitant]
     Indication: HIV INFECTION
     Route: 048
     Dates: start: 20040831, end: 20050419
  8. BIFIDOBACTERIUM [Concomitant]
     Indication: DIARRHOEA
     Route: 048
     Dates: start: 20040401, end: 20050420
  9. LOPERAMIDE HYDROCHLORIDE [Concomitant]
     Indication: DIARRHOEA
     Route: 048
     Dates: start: 20040401, end: 20050420
  10. BACTRIM [Concomitant]
     Indication: ANTIBIOTIC PROPHYLAXIS
     Route: 048
     Dates: start: 20040401, end: 20050420
  11. BACTRIM [Concomitant]
     Route: 042
     Dates: start: 20050610, end: 20050621
  12. RANITIDINE HYDROCHLORIDE [Concomitant]
     Indication: PROPHYLAXIS AGAINST GASTROINTESTINAL ULCER
     Route: 048
     Dates: start: 20040401, end: 20050420
  13. RANITIDINE HYDROCHLORIDE [Concomitant]
     Route: 048
     Dates: start: 20050421, end: 20050626
  14. RANITIDINE HYDROCHLORIDE [Concomitant]
     Dates: start: 20050506, end: 20050511
  15. ZONISAMIDE [Concomitant]
     Indication: CONVULSION
     Route: 048
     Dates: start: 20040712, end: 20050421
  16. ZONISAMIDE [Concomitant]
     Route: 048
     Dates: start: 20040712, end: 20050421
  17. RURIOCTOCOG ALFA [Concomitant]
     Indication: FACTOR VIII DEFICIENCY
     Route: 042
     Dates: start: 20040401, end: 20050618
  18. CALORIC AND AMINOACID INFUSION [Concomitant]
     Indication: DRUG USE FOR UNKNOWN INDICATION
     Route: 042
     Dates: start: 20050421, end: 20050621
  19. VITAMIN CAP [Concomitant]
     Indication: DRUG USE FOR UNKNOWN INDICATION
     Route: 042
     Dates: start: 20050421, end: 20050621
  20. MINERALS FOR HYPERALIMENTATION PREPARATIONS [Concomitant]
     Indication: DRUG USE FOR UNKNOWN INDICATION
     Route: 042
     Dates: start: 20050421, end: 20050621
  21. PHENYTOIN SODIUM [Concomitant]
     Indication: DRUG USE FOR UNKNOWN INDICATION
     Route: 048
     Dates: start: 20050422, end: 20050430
  22. PHENYTOIN SODIUM [Concomitant]
     Route: 048
     Dates: start: 20050501, end: 20050621
  23. OMEPRAZOLE [Concomitant]
     Indication: DRUG USE FOR UNKNOWN INDICATION
     Route: 048
     Dates: start: 20050427, end: 20050505
  24. DOPAMINE HCL [Concomitant]
     Indication: DRUG USE FOR UNKNOWN INDICATION
     Route: 042
     Dates: start: 20050611, end: 20050621
  25. DOBUTAMINE HCL [Concomitant]
     Indication: DRUG USE FOR UNKNOWN INDICATION
     Route: 042
     Dates: start: 20050611, end: 20050621
  26. DIAZEPAM [Concomitant]
     Route: 048
     Dates: start: 20050430, end: 20050430
  27. OMEPRAZOLE [Concomitant]
     Route: 048
     Dates: start: 20050512, end: 20050621
  28. BROMHEXINE HYDROCHLORIDE [Concomitant]
     Route: 048
     Dates: start: 20050528, end: 20050621
  29. VANCOMYCIN HYDROCHLORIDE [Concomitant]
     Route: 042
     Dates: start: 20050602, end: 20050603
  30. FLOMOXEF SODIUM [Concomitant]
     Route: 042
     Dates: start: 20050513, end: 20050601
  31. MALTOSE/LACTATED RINGER'S SOLUTION [Concomitant]
     Route: 042
     Dates: start: 20050512, end: 20050621
  32. PHENOBARBITAL TAB [Concomitant]
     Route: 048
     Dates: start: 20050430, end: 20050430
  33. PIPERACILLIN SODIUM [Concomitant]
     Route: 042
     Dates: start: 20050604, end: 20050609
  34. CEFOTIAM HYDROCHLORIDE [Concomitant]
     Route: 048
     Dates: start: 20050501, end: 20050512

REACTIONS (9)
  - ANAEMIA [None]
  - CEREBRAL INFARCTION [None]
  - CONDITION AGGRAVATED [None]
  - CONVULSION [None]
  - HEMIPLEGIA [None]
  - HYPOALBUMINAEMIA [None]
  - ORAL INTAKE REDUCED [None]
  - PNEUMONIA [None]
  - RESPIRATORY FAILURE [None]
